FAERS Safety Report 4955366-0 (Version None)
Quarter: 2006Q1

REPORT INFORMATION
  Report Type: 
  Country: None (occurrence: None)
  Receive Date: 20060322
  Receipt Date: 20060314
  Transmission Date: 20060701
  Serious: Yes (Death, Hospitalization)
  Sender: FDA-Public Use
  Company Number: COT_0401_2006

PATIENT
  Age: 49 Year
  Sex: Female
  Weight: 123.6052 kg

DRUGS (18)
  1. VENTAVIS [Suspect]
     Indication: PULMONARY HYPERTENSION
     Dosage: 5 MCG 6TO9X/DAY IH
     Route: 055
     Dates: start: 20060114
  2. TRANSDERM SCOP [Concomitant]
  3. PRANDIN [Concomitant]
  4. REGLAN [Concomitant]
  5. ASCORBIC ACID [Concomitant]
  6. ZOFRAN [Concomitant]
  7. FLONASE [Concomitant]
  8. LEXAPRO [Concomitant]
  9. TRAZODONE HCL [Concomitant]
  10. COLACE [Concomitant]
  11. INSULIN [Concomitant]
  12. ALDACTONE [Concomitant]
  13. TYLENOL (CAPLET) [Concomitant]
  14. NEURONTIN [Concomitant]
  15. LASIX [Concomitant]
  16. PROTONIX [Concomitant]
  17. TRACLEER [Concomitant]
  18. K-DUR 10 [Concomitant]

REACTIONS (3)
  - PAIN IN EXTREMITY [None]
  - RIGHT VENTRICULAR FAILURE [None]
  - SEPSIS [None]
